FAERS Safety Report 8312658-5 (Version None)
Quarter: 2012Q2

REPORT INFORMATION
  Report Type: 
  Country: None (occurrence: None)
  Receive Date: 20120426
  Receipt Date: 20120418
  Transmission Date: 20120825
  Serious: Yes (Hospitalization)
  Sender: FDA-Public Use
  Company Number: CH-BRISTOL-MYERS SQUIBB COMPANY-16532152

PATIENT
  Age: 72 Year
  Sex: Female

DRUGS (2)
  1. ORENCIA [Suspect]
     Indication: RHEUMATOID ARTHRITIS
     Dosage: INTERR 1OCT11 RESTART 23JAN12
     Route: 042
     Dates: start: 20081101
  2. METHOTREXATE [Suspect]
     Dates: start: 20030312, end: 20111002

REACTIONS (2)
  - GENERAL PHYSICAL HEALTH DETERIORATION [None]
  - PNEUMOCYSTIS JIROVECI PNEUMONIA [None]
